FAERS Safety Report 6546587-4 (Version None)
Quarter: 2010Q1

REPORT INFORMATION
  Report Type: 
  Country: None (occurrence: None)
  Receive Date: 20100122
  Receipt Date: 20091123
  Transmission Date: 20100710
  Serious: Yes (Other)
  Sender: FDA-Public Use
  Company Number: US-BAYER-200936530NA

PATIENT
  Age: 35 Year
  Sex: Female
  Weight: 52 kg

DRUGS (1)
  1. MIRENA [Suspect]
     Indication: CONTRACEPTION
     Dosage: CONTINUOUS
     Route: 015
     Dates: start: 20090703, end: 20090925

REACTIONS (7)
  - ABDOMINAL DISCOMFORT [None]
  - MEDICAL DEVICE COMPLICATION [None]
  - PAIN [None]
  - POST ABORTION HAEMORRHAGE [None]
  - PROCEDURAL PAIN [None]
  - SCAR [None]
  - UTERINE PERFORATION [None]
